FAERS Safety Report 17622262 (Version 1)
Quarter: 2020Q2

REPORT INFORMATION
  Report Type: Spontaneous
  Country: GB (occurrence: GB)
  Receive Date: 20200403
  Receipt Date: 20200403
  Transmission Date: 20200713
  Serious: Yes (Other)
  Sender: FDA-Public Use
  Company Number: GB-TEVA-2020-GB-1218503

PATIENT
  Age: 54 Year
  Sex: Female
  Weight: 113 kg

DRUGS (12)
  1. VALPROIC ACID. [Concomitant]
     Active Substance: VALPROIC ACID
     Dosage: 1 DOSAGE FORMS
     Dates: start: 20191210
  2. IBUPROFEN. [Concomitant]
     Active Substance: IBUPROFEN
     Dosage: APPLY THREE TIMES DAILY TO SHOULDER, IF REQUIRE...1 DOSAGE FORM
     Dates: start: 20171121, end: 20200124
  3. AMOROLFINE [Concomitant]
     Active Substance: AMOROLFINE
     Dosage: APPLY. 2 DOSAGE FORMS
     Dates: start: 20180103, end: 20200124
  4. VENLAFAXINE [Suspect]
     Active Substance: VENLAFAXINE HYDROCHLORIDE
     Dosage: 37.5 MG
     Dates: start: 20200312
  5. RAMIPRIL. [Concomitant]
     Active Substance: RAMIPRIL
     Dosage: 1 DOSAGE FORMS
     Dates: start: 20191210
  6. ZEROBASE [Concomitant]
     Active Substance: MINERAL OIL\PARAFFIN
     Dosage: APPLY?UNCHECKED UNITS. 1 DOSAGE FORMS
     Dates: start: 20180222, end: 20200124
  7. AMLODIPINE [Concomitant]
     Active Substance: AMLODIPINE BESYLATE
     Dosage: 1 DOSAGE FORMS
     Dates: start: 20191210
  8. OMEPRAZOLE. [Concomitant]
     Active Substance: OMEPRAZOLE
     Dosage: 1 DOSAGE FORMS
     Dates: start: 20191210
  9. FLUOXETINE [Concomitant]
     Active Substance: FLUOXETINE HYDROCHLORIDE
     Dosage: 1 DOSAGE FORMS
     Dates: start: 20191210
  10. SIMVASTATIN. [Concomitant]
     Active Substance: SIMVASTATIN
     Dosage: 1 DOSAGE FORMS
     Dates: start: 20191210
  11. ISPAGHULA EXTRACT\PSYLLIUM [Concomitant]
     Active Substance: HERBALS\PLANTAGO OVATA SEED\PLANTAGO SEED
     Dosage: 2 DOSAGE FORMS
     Dates: start: 20171121, end: 20200124
  12. LEVOTHYROXINE. [Concomitant]
     Active Substance: LEVOTHYROXINE
     Dosage: 1 DOSAGE FORMS
     Dates: start: 20191210

REACTIONS (1)
  - Drug hypersensitivity [Not Recovered/Not Resolved]

NARRATIVE: CASE EVENT DATE: 20200312
